FAERS Safety Report 6866066-4 (Version None)
Quarter: 2010Q3

REPORT INFORMATION
  Report Type: 
  Country: None (occurrence: None)
  Receive Date: 20100722
  Receipt Date: 20100709
  Transmission Date: 20110219
  Serious: Yes (Other)
  Sender: FDA-Public Use
  Company Number: PHHY2010CA45184

PATIENT
  Age: 37 Year
  Sex: Female

DRUGS (7)
  1. CLOZARIL [Suspect]
     Dosage: 100 MG
  2. CLOZARIL [Interacting]
     Dosage: 87.5 MG
  3. ZOLOFT [Interacting]
     Dosage: 150 MG
  4. ZOLOFT [Interacting]
     Dosage: 200 MG, UNK
  5. ABILIFY [Interacting]
     Dosage: 2.5 MG
  6. ABILIFY [Interacting]
     Dosage: 5 MG
  7. DIAZEPAM [Concomitant]
     Dosage: UNK

REACTIONS (11)
  - ANTIPSYCHOTIC DRUG LEVEL INCREASED [None]
  - ASTHENIA [None]
  - DRUG INTERACTION [None]
  - EMOTIONAL DISTRESS [None]
  - FATIGUE [None]
  - HEADACHE [None]
  - INSOMNIA [None]
  - IRRITABILITY [None]
  - MUSCLE TIGHTNESS [None]
  - SALIVARY HYPERSECRETION [None]
  - WEIGHT INCREASED [None]
